FAERS Safety Report 10108621 (Version 19)
Quarter: 2016Q1

REPORT INFORMATION
  Report Type: Report from Study
  Country: CA (occurrence: CA)
  Receive Date: 20140425
  Receipt Date: 20160215
  Transmission Date: 20160525
  Serious: Yes (Hospitalization, Other)
  Sender: FDA-Public Use
  Company Number: CA-ROCHE-1373870

PATIENT
  Age: 73 Year
  Sex: Female
  Weight: 99.8 kg

DRUGS (13)
  1. RAMIPRIL. [Concomitant]
     Active Substance: RAMIPRIL
     Route: 065
  2. B COMPLEX VITAMIN [Concomitant]
     Route: 065
  3. PREDNISONE. [Suspect]
     Active Substance: PREDNISONE
     Indication: INFLAMMATION
     Route: 065
  4. ACTEMRA [Suspect]
     Active Substance: TOCILIZUMAB
     Indication: RHEUMATOID ARTHRITIS
     Route: 042
     Dates: start: 20111104
  5. RITUXAN [Suspect]
     Active Substance: RITUXIMAB
     Indication: RHEUMATOID ARTHRITIS
     Route: 042
     Dates: start: 20070905, end: 20110105
  6. ACTEMRA [Suspect]
     Active Substance: TOCILIZUMAB
     Route: 042
  7. HYDROCHLOROTHIAZIDE. [Concomitant]
     Active Substance: HYDROCHLOROTHIAZIDE
     Route: 065
  8. MINOCYCLINE [Concomitant]
     Active Substance: MINOCYCLINE\MINOCYCLINE HYDROCHLORIDE
     Dosage: DATE: 26/MAR
     Route: 065
  9. PREDNISONE. [Suspect]
     Active Substance: PREDNISONE
     Route: 065
  10. ACETAMINOPHEN. [Concomitant]
     Active Substance: ACETAMINOPHEN
     Indication: PREMEDICATION
     Route: 048
     Dates: start: 20070905, end: 20110105
  11. SOLU-CORTEF [Concomitant]
     Active Substance: HYDROCORTISONE SODIUM SUCCINATE
     Indication: PREMEDICATION
     Route: 042
     Dates: start: 20070905, end: 20110105
  12. VITAMIN B12 [Concomitant]
     Active Substance: CYANOCOBALAMIN
     Route: 065
  13. DIPHENHYDRAMINE. [Concomitant]
     Active Substance: DIPHENHYDRAMINE
     Indication: PREMEDICATION
     Route: 048
     Dates: start: 20070905, end: 20110105

REACTIONS (14)
  - Gastric infection [Unknown]
  - Pneumonia [Unknown]
  - Fall [Unknown]
  - Weight decreased [Unknown]
  - Nasopharyngitis [Recovering/Resolving]
  - Peripheral swelling [Not Recovered/Not Resolved]
  - Rheumatoid arthritis [Not Recovered/Not Resolved]
  - Drug ineffective [Unknown]
  - Nerve injury [Unknown]
  - Hypertension [Not Recovered/Not Resolved]
  - Stress [Unknown]
  - Pharyngitis streptococcal [Recovered/Resolved]
  - Volvulus [Unknown]
  - Peroneal nerve palsy [Unknown]

NARRATIVE: CASE EVENT DATE: 2014
